FAERS Safety Report 7074843-2 (Version None)
Quarter: 2010Q4

REPORT INFORMATION
  Report Type: 
  Country: None (occurrence: None)
  Receive Date: 20101029
  Receipt Date: 20101019
  Transmission Date: 20110411
  Serious: Yes (Hospitalization, Other)
  Sender: FDA-Public Use
  Company Number: BE-ABBOTT-10P-013-0679112-00

PATIENT
  Sex: Female
  Weight: 83 kg

DRUGS (15)
  1. HUMIRA [Suspect]
     Indication: RHEUMATOID ARTHRITIS
     Dates: start: 20070726
  2. TRADONAL ODIS [Concomitant]
     Indication: ARTHRITIS
  3. TRADONAL ODIS [Concomitant]
  4. MEDROL [Concomitant]
     Indication: ARTHRITIS
  5. CARDIO-ASPIRIN [Concomitant]
  6. PLAVIX [Concomitant]
  7. SIMVASTATIN [Concomitant]
  8. CALCIUM CARBONATE [Concomitant]
     Dosage: 1 GRAM DAILY
  9. MIXTARD HUMAN 70/30 [Concomitant]
     Dosage: 18 UNITS IN MORNING + 10 IN EVENING
  10. LANOXIN [Concomitant]
  11. LISINOPRIL [Concomitant]
  12. PLAQUENIL [Concomitant]
  13. COLCHICINE [Concomitant]
  14. OMEPRAZOLE [Concomitant]
  15. FOSAMAX [Concomitant]
     Dosage: 70MG PER WEEK

REACTIONS (24)
  - BACK PAIN [None]
  - CANDIDIASIS [None]
  - CARDIAC FAILURE [None]
  - DIABETES MELLITUS INADEQUATE CONTROL [None]
  - DIARRHOEA [None]
  - EJECTION FRACTION ABNORMAL [None]
  - HYPERKALAEMIA [None]
  - HYPERTENSION [None]
  - HYPERTHYROIDISM [None]
  - HYPOGLYCAEMIA [None]
  - INSULIN-REQUIRING TYPE 2 DIABETES MELLITUS [None]
  - ISCHAEMIC CARDIOMYOPATHY [None]
  - NEPHROANGIOSCLEROSIS [None]
  - OROPHARYNGEAL DISCOMFORT [None]
  - PNEUMONIA VIRAL [None]
  - PRODUCTIVE COUGH [None]
  - PULMONARY EMBOLISM [None]
  - RENAL FAILURE CHRONIC [None]
  - RHEUMATOID ARTHRITIS [None]
  - SJOGREN'S SYNDROME [None]
  - TACHYCARDIA [None]
  - URINARY TRACT INFECTION [None]
  - VIRAL INFECTION [None]
  - VITAMIN D DECREASED [None]
